FAERS Safety Report 5626779-9 (Version None)
Quarter: 2008Q1

REPORT INFORMATION
  Report Type: 
  Country: None (occurrence: None)
  Receive Date: 20080214
  Receipt Date: 20080205
  Transmission Date: 20080703
  Serious: Yes (Other)
  Sender: FDA-Public Use
  Company Number: JP-PFIZER INC-2008011884

PATIENT
  Age: 13 Month

DRUGS (3)
  1. ZITHROMAX [Suspect]
     Indication: UPPER RESPIRATORY TRACT INFLAMMATION
     Route: 048
  2. EXPECTORANTS [Concomitant]
  3. ANTIHISTAMINES [Concomitant]

REACTIONS (1)
  - RHABDOMYOLYSIS [None]
